FAERS Safety Report 8687383 (Version 4)
Quarter: 2012Q4

REPORT INFORMATION
  Report Type: 
  Country: JP (occurrence: JP)
  Receive Date: 20120727
  Receipt Date: 20121114
  Transmission Date: 20130627
  Serious: Yes (Death, Other)
  Sender: FDA-Public Use
  Company Number: JP-ELI_LILLY_AND_COMPANY-JP201207007023

PATIENT
  Age: 62 Year
  Sex: Female
  Weight: 50 kg

DRUGS (6)
  1. ALIMTA [Suspect]
     Indication: LUNG ADENOCARCINOMA
     Dosage: 700mg/body, other
     Route: 042
     Dates: start: 20110224, end: 20120205
  2. CARBOPLATIN [Concomitant]
     Indication: LUNG ADENOCARCINOMA
     Dosage: 450mg/body, other
     Route: 042
     Dates: start: 20110224, end: 20110627
  3. AVASTIN [Concomitant]
     Indication: LUNG ADENOCARCINOMA
     Dosage: 800mg/body, other
     Route: 042
     Dates: start: 20110512, end: 20120104
  4. METHYCOBAL [Concomitant]
     Indication: PROPHYLAXIS
     Dosage: 1000 ug, qd
     Dates: start: 20110210, end: 20120315
  5. ZOMETA [Concomitant]
     Indication: OSTEOSARCOMA METASTATIC
     Dosage: 4 mg, qd
     Route: 042
     Dates: start: 20110215, end: 20120216
  6. FOLIC ACID [Concomitant]
     Dosage: 0.5 mg, qd
     Route: 048
     Dates: start: 20110218, end: 20120323

REACTIONS (4)
  - Pseudomembranous colitis [Fatal]
  - White blood cell count decreased [Unknown]
  - Off label use [Unknown]
  - Pyrexia [Recovered/Resolved]
